FAERS Safety Report 4462883-9 (Version None)
Quarter: 2004Q3

REPORT INFORMATION
  Report Type: 
  Country: None (occurrence: None)
  Receive Date: 20040927
  Receipt Date: 20040909
  Transmission Date: 20050211
  Serious: Yes (Life-Threatening, Hospitalization, Disabling)
  Sender: FDA-Public Use
  Company Number: 2004-UK-00869UK

PATIENT
  Age: 34 Year
  Sex: Female

DRUGS (5)
  1. NEVIRAPINE             (NEVIRAPINE) [Suspect]
     Indication: HIV INFECTION
     Dosage: 200MG BD PO (TWICE DAILY)
     Route: 048
     Dates: start: 20040630, end: 20040822
  2. BACTRIM [Suspect]
     Dosage: 1920 MG PO
     Route: 048
     Dates: start: 20040630, end: 20040821
  3. LAMIVUDINE (LAMIVUDINE) [Concomitant]
  4. STAVUDINE (STAVUDINE) [Concomitant]
  5. CIPROFLOXACIN [Concomitant]

REACTIONS (2)
  - DIARRHOEA [None]
  - TOXIC EPIDERMAL NECROLYSIS [None]
